FAERS Safety Report 7583543-1 (Version None)
Quarter: 2011Q2

REPORT INFORMATION
  Report Type: 
  Country: None (occurrence: None)
  Receive Date: 20110527
  Receipt Date: 20101208
  Transmission Date: 20111010
  Serious: Yes (Hospitalization, Other)
  Sender: FDA-Public Use
  Company Number: US201002003436

PATIENT
  Age: 53 Year
  Sex: Female
  Weight: 81.6 kg

DRUGS (13)
  1. METFORMIN HCL [Concomitant]
  2. SYNTHROID [Concomitant]
  3. BYETTA [Suspect]
     Dates: start: 20070201, end: 20070302
  4. BYETTA [Suspect]
     Dates: start: 20070709, end: 20071206
  5. BYETTA [Suspect]
     Dates: start: 20070101, end: 20071101
  6. LOPID [Concomitant]
  7. PREMPRO [Concomitant]
  8. LOVAZA [Concomitant]
  9. ALEVE (NAPROXEN SODIUM) [Concomitant]
  10. EXENATIDE PEN (EXENATIDE PEN) [Concomitant]
  11. TYLENOL /SCH/ (PARACETAMOL) [Concomitant]
  12. ASPIRIN/USA/ (ACETYLSALICYLIC ACID) [Concomitant]
  13. NSAID'S [Concomitant]

REACTIONS (2)
  - ANGIOMYOLIPOMA [None]
  - PANCREATITIS ACUTE [None]
